FAERS Safety Report 17337230 (Version 2)
Quarter: 2020Q1

REPORT INFORMATION
  Report Type: Spontaneous
  Country: IT (occurrence: IT)
  Receive Date: 20200129
  Receipt Date: 20200204
  Transmission Date: 20200409
  Serious: Yes (Other)
  Sender: FDA-Public Use
  Company Number: NVSC2019IT053218

PATIENT
  Age: 73 Year
  Sex: Male

DRUGS (11)
  1. ESOMEPRAZOLE. [Suspect]
     Active Substance: ESOMEPRAZOLE MAGNESIUM
     Indication: THROMBOSIS
     Dosage: UNK
     Route: 065
  2. KETOROLAC [Suspect]
     Active Substance: KETOROLAC TROMETHAMINE
     Indication: ABDOMINAL PAIN
     Dosage: 3 DOSES
     Route: 065
  3. NADROPARIN CALCIUM [Suspect]
     Active Substance: NADROPARIN CALCIUM
     Indication: DEEP VEIN THROMBOSIS
     Dosage: 0.6 ML, BID (1 INJECTION EVERY 12 HOURS)
     Route: 065
     Dates: start: 20180110, end: 20180220
  4. TORADOL [Suspect]
     Active Substance: KETOROLAC TROMETHAMINE
     Indication: ABDOMINAL PAIN
     Dosage: 3 DF, UNK ( 3 DOSES)
     Route: 065
  5. CLOPIDOGREL [Suspect]
     Active Substance: CLOPIDOGREL BISULFATE
     Indication: THROMBOSIS
     Dosage: UNK
     Route: 065
     Dates: start: 2001
  6. ENOXAPARIN [Suspect]
     Active Substance: ENOXAPARIN
     Indication: ANTICOAGULANT THERAPY
     Dosage: 0.8 ML, QD
     Route: 065
  7. NADROPARIN CALCIUM [Suspect]
     Active Substance: NADROPARIN CALCIUM
     Indication: ANTICOAGULANT THERAPY
     Dosage: 1.2 ML, QD
     Route: 065
     Dates: start: 20180110, end: 20180220
  8. SIMVASTATIN. [Suspect]
     Active Substance: SIMVASTATIN
     Indication: THROMBOSIS
     Dosage: UNK
     Route: 065
     Dates: start: 2001
  9. ENOXAPARIN [Suspect]
     Active Substance: ENOXAPARIN
     Indication: DEEP VEIN THROMBOSIS
     Dosage: 2 UNK, QD(0.4 ML/ 4000 IU BID (1 MG/KG TWICE DAILY) FOR 6 DAYS)
     Route: 065
  10. ENOXAPARIN [Suspect]
     Active Substance: ENOXAPARIN
     Indication: THROMBOSIS
     Dosage: 1 MG/KG, Q12H, 2 MG/KG DAILY; DOSE: 0.4 ML/4000 IU BID (1 MG/KG
     Route: 065
  11. NADROPARIN CALCIUM [Suspect]
     Active Substance: NADROPARIN CALCIUM
     Indication: THROMBOSIS

REACTIONS (2)
  - Drug-induced liver injury [Recovered/Resolved]
  - Off label use [Unknown]
